FAERS Safety Report 10404024 (Version 1)
Quarter: 2014Q1

REPORT INFORMATION
  Report Type: Spontaneous
  Country: US (occurrence: None)
  Receive Date: 20131018
  Receipt Date: 20131018
  Transmission Date: 20141002
  Serious: No
  Sender: FDA-Public Use
  Company Number: AEGR000064

PATIENT
  Age: 68 Year
  Sex: Female
  Weight: 63.5 kg

DRUGS (2)
  1. JUXTAPID(LOMITAPIDE)CAPSULE,5MG [Suspect]
     Indication: TYPE IIA HYPERLIPIDAEMIA
     Route: 048
     Dates: start: 20130528
  2. LIVALO (PITAVASTATIN CALCIUM) [Concomitant]

REACTIONS (3)
  - Feeling abnormal [None]
  - Eructation [None]
  - Nausea [None]
